FAERS Safety Report 8557926-7 (Version None)
Quarter: 2012Q3

REPORT INFORMATION
  Report Type: 
  Country: None (occurrence: None)
  Receive Date: 20120720
  Receipt Date: 20120706
  Transmission Date: 20120928
  Serious: Yes (Hospitalization)
  Sender: FDA-Public Use
  Company Number: KV201200128

PATIENT
  Age: 37 Year
  Sex: Female

DRUGS (2)
  1. PRENATAL VITAMINS /01549301/ (ASCORBIC ACID, BIOTIN, MINERALS NOS, NIC [Concomitant]
  2. MAKENA [Suspect]
     Indication: PREMATURE DELIVERY
     Dosage: 250 MG, ONCE WEEKLY, INTRAMUSCULAR
     Route: 030
     Dates: start: 20120427, end: 20120622

REACTIONS (2)
  - CERVIX HAEMORRHAGE UTERINE [None]
  - MATERNAL EXPOSURE DURING PREGNANCY [None]
